FAERS Safety Report 4539887-0 (Version None)
Quarter: 2004Q4

REPORT INFORMATION
  Report Type: 
  Country: None (occurrence: None)
  Receive Date: 20041223
  Receipt Date: 20041220
  Transmission Date: 20050328
  Serious: Yes (Life-Threatening, Hospitalization, Other)
  Sender: FDA-Public Use
  Company Number: 200319856BWH

PATIENT
  Age: 74 Year
  Sex: Female
  Weight: 116.3 kg

DRUGS (9)
  1. AVELOX [Suspect]
     Indication: BRONCHITIS
     Dosage: 400 MG, QD, ORAL
     Route: 048
     Dates: start: 20020612, end: 20020621
  2. AVELOX [Suspect]
     Indication: PNEUMONIA
     Dosage: 400 MG, QD, ORAL
     Route: 048
     Dates: start: 20020612, end: 20020621
  3. ALBUTEROL [Concomitant]
  4. ASPIRIN [Concomitant]
  5. ROBITUSSIN [Concomitant]
  6. ATROVENT NEBULES [Concomitant]
  7. PREVACID [Concomitant]
  8. LISINOPRIL [Concomitant]
  9. COUMADIN [Concomitant]

REACTIONS (1)
  - TORSADE DE POINTES [None]
